FAERS Safety Report 4769884-1 (Version None)
Quarter: 2005Q3

REPORT INFORMATION
  Report Type: 
  Country: None (occurrence: None)
  Receive Date: 20050915
  Receipt Date: 20050630
  Transmission Date: 20060218
  Serious: Yes (Hospitalization)
  Sender: FDA-Public Use
  Company Number: 2005AP03874

PATIENT
  Age: 20406 Day
  Sex: Female
  Weight: 44.5 kg

DRUGS (5)
  1. ARIMIDEX [Suspect]
     Indication: BREAST CANCER
     Route: 048
     Dates: start: 20050528, end: 20050616
  2. AMOBAN [Concomitant]
     Route: 048
  3. PURSENNID [Concomitant]
     Route: 048
  4. EMPYNASE [Concomitant]
     Route: 048
  5. NOLVADEX [Concomitant]
     Route: 048
     Dates: start: 20050512, end: 20050528

REACTIONS (5)
  - BLOOD LACTATE DEHYDROGENASE INCREASED [None]
  - JAUNDICE [None]
  - LIVER FUNCTION TEST ABNORMAL [None]
  - MALAISE [None]
  - PYREXIA [None]
